FAERS Safety Report 16089697 (Version 3)
Quarter: 2019Q1

REPORT INFORMATION
  Report Type: Spontaneous
  Country: CZ (occurrence: CZ)
  Receive Date: 20190319
  Receipt Date: 20190322
  Transmission Date: 20190418
  Serious: Yes (Death, Other)
  Sender: FDA-Public Use
  Company Number: CZ-BAYER-2019-048883

PATIENT

DRUGS (1)
  1. BETAFERON [Suspect]
     Active Substance: INTERFERON BETA-1B
     Route: 064

REACTIONS (2)
  - Foetal exposure during pregnancy [None]
  - Placental insufficiency [Fatal]

NARRATIVE: CASE EVENT DATE: 2018
